FAERS Safety Report 9817781 (Version 1)
Quarter: 2014Q1

REPORT INFORMATION
  Report Type: Spontaneous
  Country: US (occurrence: None)
  Receive Date: 20140110
  Receipt Date: 20140110
  Transmission Date: 20141002
  Serious: Yes (Hospitalization)
  Sender: FDA-Public Use
  Company Number: None

PATIENT
  Age: 57 Year
  Sex: Male
  Weight: 66.9 kg

DRUGS (6)
  1. LISINOPRIL/HYDROCHLOROTHIAZIDE [Suspect]
     Indication: HYPERTENSION
     Route: 048
     Dates: start: 20131227, end: 20131230
  2. RANITIDINE [Concomitant]
  3. PRAVASTATIN [Concomitant]
  4. NITROSTAT SL [Concomitant]
  5. METOPROLOL TARTRATE [Concomitant]
  6. ASPIRIN EC [Concomitant]

REACTIONS (2)
  - Lip swelling [None]
  - Circumoral oedema [None]
